FAERS Safety Report 7985521-7 (Version None)
Quarter: 2011Q4

REPORT INFORMATION
  Report Type: 
  Country: None (occurrence: None)
  Receive Date: 20111216
  Receipt Date: 20111213
  Transmission Date: 20120403
  Serious: Yes (Other)
  Sender: FDA-Public Use
  Company Number: CA-AMGEN-CANSP2011054111

PATIENT
  Age: 51 Year
  Sex: Female

DRUGS (10)
  1. PROTEIN SUPPLEMENTS [Concomitant]
  2. KETOROLAC TROMETHAMINE [Concomitant]
     Dosage: 10 MG, PRN
  3. MULTIVITAMIN                       /00097801/ [Concomitant]
     Dosage: UNK UNK, QD
  4. ENBREL [Suspect]
     Indication: PSORIATIC ARTHROPATHY
     Dosage: 50 MG, QWK
     Route: 058
     Dates: start: 20110927
  5. RABEPRAZOLE SODIUM [Concomitant]
     Dosage: 20 MG, QD
  6. PREMARIN [Concomitant]
     Dosage: 0.6 MG, QD
  7. FLUTAMIDE TEVA [Concomitant]
     Dosage: 20 MG, QD
  8. DETROL [Concomitant]
     Dosage: 4 MG, QD
  9. CELEBREX [Concomitant]
     Dosage: 200 MG, QD
  10. POTASSIUM CHLORIDE [Concomitant]

REACTIONS (4)
  - FATIGUE [None]
  - DRUG INEFFECTIVE [None]
  - MIGRAINE [None]
  - MOOD ALTERED [None]
